FAERS Safety Report 8533411-3 (Version None)
Quarter: 2012Q3

REPORT INFORMATION
  Report Type: 
  Country: None (occurrence: None)
  Receive Date: 20120724
  Receipt Date: 20120718
  Transmission Date: 20120928
  Serious: Yes (Other)
  Sender: FDA-Public Use
  Company Number: PHHY2012BR028421

PATIENT
  Sex: Female
  Weight: 42 kg

DRUGS (3)
  1. RITALIN [Suspect]
     Indication: ATTENTION DEFICIT/HYPERACTIVITY DISORDER
     Dosage: 10 MG, DAILY
     Route: 048
  2. RITALIN LA [Suspect]
     Indication: ATTENTION DEFICIT/HYPERACTIVITY DISORDER
     Dosage: 30 MG, DAILY
     Route: 048
  3. RITALIN [Suspect]
     Dosage: 10 MG, BID
     Route: 048
     Dates: start: 20120101

REACTIONS (4)
  - PYREXIA [None]
  - SACROILIITIS [None]
  - DENGUE FEVER [None]
  - MOOD ALTERED [None]
